FAERS Safety Report 16770210 (Version 2)
Quarter: 2019Q4

REPORT INFORMATION
  Report Type: Spontaneous
  Country: US (occurrence: US)
  Receive Date: 20190904
  Receipt Date: 20191127
  Transmission Date: 20200122
  Serious: No
  Sender: FDA-Public Use
  Company Number: US-GLENMARK PHARMACEUTICALS-2019GMK042635

PATIENT

DRUGS (1)
  1. CLOBETASOL PROPIONATE CREAM USP, 0.05% [Suspect]
     Active Substance: CLOBETASOL PROPIONATE
     Indication: VULVOVAGINAL MYCOTIC INFECTION
     Dosage: UNK
     Route: 065

REACTIONS (4)
  - Product physical consistency issue [Unknown]
  - Product use issue [Unknown]
  - Drug ineffective for unapproved indication [Unknown]
  - Product quality issue [Unknown]
